FAERS Safety Report 6124628-6 (Version None)
Quarter: 2009Q1

REPORT INFORMATION
  Report Type: 
  Country: None (occurrence: None)
  Receive Date: 20090319
  Receipt Date: 20090313
  Transmission Date: 20090719
  Serious: Yes (Death)
  Sender: FDA-Public Use
  Company Number: B0559824A

PATIENT
  Age: 7 Month
  Sex: Male

DRUGS (5)
  1. CLAVAMOX [Suspect]
     Indication: OTITIS MEDIA
     Dosage: .6G TWICE PER DAY
     Route: 048
     Dates: start: 20090208, end: 20090214
  2. BIOFERMIN R [Concomitant]
     Dosage: .4G TWICE PER DAY
     Route: 048
     Dates: start: 20090208, end: 20090214
  3. MUCODYNE [Concomitant]
     Indication: ACUTE SINUSITIS
     Dosage: 240MG PER DAY
     Route: 048
     Dates: start: 20090208, end: 20090214
  4. MUCOSAL [Concomitant]
     Indication: ACUTE SINUSITIS
     Dosage: 7MG PER DAY
     Route: 048
     Dates: start: 20090208, end: 20090214
  5. KETOTIFEN FUMARATE [Concomitant]
     Indication: RHINITIS
     Dosage: .25G TWICE PER DAY
     Route: 048
     Dates: start: 20090208, end: 20090214

REACTIONS (1)
  - DEATH [None]
